FAERS Safety Report 7495919-1 (Version None)
Quarter: 2011Q2

REPORT INFORMATION
  Report Type: 
  Country: None (occurrence: None)
  Receive Date: 20110523
  Receipt Date: 20110511
  Transmission Date: 20111010
  Serious: Yes (Hospitalization)
  Sender: FDA-Public Use
  Company Number: FR-BRISTOL-MYERS SQUIBB COMPANY-15760671

PATIENT
  Age: 37 Year
  Sex: Male

DRUGS (6)
  1. ALDALIX [Suspect]
  2. DIAMICRON [Suspect]
     Dosage: 1DF=30MG TABS
     Route: 048
     Dates: start: 20110314, end: 20110413
  3. XANAX [Suspect]
  4. CLONAZEPAM [Suspect]
  5. GLUCOPHAGE [Suspect]
     Dosage: 850MG TABS; 3DF:14MAR11-13APR11(29D) 2DF:14APR11-19APR11(5D) DOSE REDUCED TO 500MG 2/D
     Route: 048
     Dates: start: 20110314, end: 20110419
  6. DEPAKENE [Suspect]

REACTIONS (2)
  - HEPATIC ENZYME INCREASED [None]
  - CHOLESTASIS [None]
